FAERS Safety Report 17459706 (Version 2)
Quarter: 2020Q1

REPORT INFORMATION
  Report Type: Report from Study
  Country: MX (occurrence: MX)
  Receive Date: 20200226
  Receipt Date: 20200310
  Transmission Date: 20200409
  Serious: Yes (Other)
  Sender: FDA-Public Use
  Company Number: NVSC2020MX053732

PATIENT
  Age: 54 Year
  Sex: Female
  Weight: 69.5 kg

DRUGS (2)
  1. METFORMINE [Concomitant]
     Active Substance: METFORMIN HYDROCHLORIDE
     Indication: BLOOD GLUCOSE INCREASED
     Dosage: 850 MG
     Route: 048
     Dates: start: 20190228
  2. COSENTYX [Suspect]
     Active Substance: SECUKINUMAB
     Indication: PSORIASIS
     Dosage: 300 MG, QMO
     Route: 058
     Dates: start: 20180611

REACTIONS (3)
  - Neuropathy peripheral [Recovered/Resolved]
  - Pruritus [Recovered/Resolved]
  - Rhinitis allergic [Unknown]

NARRATIVE: CASE EVENT DATE: 201902
